FAERS Safety Report 7486567-8 (Version None)
Quarter: 2011Q2

REPORT INFORMATION
  Report Type: 
  Country: None (occurrence: None)
  Receive Date: 20110517
  Receipt Date: 20100520
  Transmission Date: 20111010
  Serious: No
  Sender: FDA-Public Use
  Company Number: US-NOVEN-ALL1-2010-02978

PATIENT

DRUGS (5)
  1. ZOLOFT [Concomitant]
     Dosage: 25 MG, 1X/DAY:QD
     Route: 048
     Dates: start: 20080101
  2. DAYTRANA [Suspect]
     Dosage: 15 MG, 1X/DAY:QD
     Route: 062
     Dates: start: 20080101
  3. TENEX [Concomitant]
  4. TENEX [Concomitant]
     Dosage: 10 MG, 1X/DAY:QD
     Route: 048
     Dates: start: 20080101
  5. ZOLOFT [Concomitant]

REACTIONS (5)
  - INCORRECT DRUG ADMINISTRATION DURATION [None]
  - PRODUCT QUALITY ISSUE [None]
  - WRONG TECHNIQUE IN DRUG USAGE PROCESS [None]
  - REBOUND EFFECT [None]
  - EMOTIONAL DISTRESS [None]
